FAERS Safety Report 9193692 (Version 1)
Quarter: 2013Q1

REPORT INFORMATION
  Report Type: Spontaneous
  Country: US (occurrence: None)
  Receive Date: 20130325
  Receipt Date: 20130325
  Transmission Date: 20140127
  Serious: Yes (Other)
  Sender: FDA-Public Use
  Company Number: None

PATIENT
  Age: 57 Year
  Sex: Female
  Weight: 56.25 kg

DRUGS (2)
  1. NEXIUM 40MG ASTRA ZENECA [Suspect]
     Indication: GASTROOESOPHAGEAL REFLUX DISEASE
     Dosage: 40MG  QD  PO
     Route: 048
     Dates: start: 20130308, end: 20130320
  2. CARAFATE [Concomitant]

REACTIONS (4)
  - Abdominal pain upper [None]
  - Self-medication [None]
  - Product quality issue [None]
  - Drug ineffective [None]
